FAERS Safety Report 5609077-9 (Version None)
Quarter: 2008Q1

REPORT INFORMATION
  Report Type: 
  Country: None (occurrence: None)
  Receive Date: 20080130
  Receipt Date: 20080130
  Transmission Date: 20080703
  Serious: Yes (Hospitalization)
  Sender: FDA-Public Use
  Company Number: None

PATIENT
  Sex: Female
  Weight: 49.8 kg

DRUGS (3)
  1. CYCLOPHOSPHAMIDE [Suspect]
     Dosage: 980 MG
  2. CYTARABINE [Suspect]
     Dosage: 113 MG
  3. THIOGUANINE [Suspect]
     Dosage: 90 MG

REACTIONS (7)
  - CARDIOGENIC SHOCK [None]
  - CHEST PAIN [None]
  - DIZZINESS [None]
  - GENERAL PHYSICAL HEALTH DETERIORATION [None]
  - HYPOTENSION [None]
  - RESPIRATORY DISTRESS [None]
  - VENTRICULAR FAILURE [None]
